FAERS Safety Report 23364521 (Version 1)
Quarter: 2024Q1

REPORT INFORMATION
  Report Type: Spontaneous
  Country: CZ (occurrence: CZ)
  Receive Date: 20240104
  Receipt Date: 20240104
  Transmission Date: 20240409
  Serious: Yes (Hospitalization, Other)
  Sender: FDA-Public Use
  Company Number: CZ-OPELLA-2023OHG004777

PATIENT

DRUGS (1)
  1. ACETAMINOPHEN [Suspect]
     Active Substance: ACETAMINOPHEN
     Indication: Foetal exposure during pregnancy
     Route: 065

REACTIONS (4)
  - Pulmonary hypertension [Unknown]
  - Ductus arteriosus premature closure [Unknown]
  - Tricuspid valve incompetence [Unknown]
  - Cardiac hypertrophy [Unknown]
